FAERS Safety Report 6248139-2 (Version None)
Quarter: 2009Q2

REPORT INFORMATION
  Report Type: 
  Country: None (occurrence: None)
  Receive Date: 20090629
  Receipt Date: 20070531
  Transmission Date: 20091009
  Serious: Yes (Other)
  Sender: FDA-Public Use
  Company Number: US-ASTRAZENECA-2006UW22258

PATIENT
  Age: 13019 Day
  Sex: Female
  Weight: 117.9 kg

DRUGS (20)
  1. SEROQUEL [Suspect]
     Indication: MENTAL DISORDER
     Route: 048
     Dates: start: 20020809
  2. SEROQUEL [Suspect]
     Indication: INSOMNIA
     Route: 048
     Dates: start: 20020809
  3. SEROQUEL [Suspect]
     Route: 048
     Dates: start: 20020101
  4. SEROQUEL [Suspect]
     Route: 048
     Dates: start: 20020101
  5. WELLBUTRIN [Concomitant]
  6. MOBIC [Concomitant]
     Dates: start: 20031216
  7. TORADOL [Concomitant]
     Dates: start: 20031216
  8. VALIUM [Concomitant]
     Dates: start: 20031216
  9. ULTRAM [Concomitant]
     Dates: start: 20031216
  10. PREVACID [Concomitant]
     Dates: start: 20031216
  11. DARVOCET [Concomitant]
     Dates: start: 20031216
  12. DETROL [Concomitant]
     Dates: start: 20031216
  13. CLONIDINE [Concomitant]
     Dates: start: 20071101
  14. REGLAN [Concomitant]
     Dates: start: 20071114
  15. LORTAB [Concomitant]
     Dates: start: 20071101
  16. LOVASTATIN [Concomitant]
     Dates: start: 20071101
  17. METFORMIN [Concomitant]
     Dates: start: 20070902
  18. TRICOR [Concomitant]
     Dates: start: 20071101
  19. WARFARIN SODIUM [Concomitant]
     Dates: start: 20071101
  20. OMEPRAZOLE MAGNESIUM [Concomitant]
     Dates: start: 20071101

REACTIONS (4)
  - DIABETES MELLITUS [None]
  - DIABETIC GASTROPARESIS [None]
  - DIABETIC NEUROPATHY [None]
  - TYPE 2 DIABETES MELLITUS [None]
